FAERS Safety Report 5807085-6 (Version None)
Quarter: 2008Q3

REPORT INFORMATION
  Report Type: 
  Country: None (occurrence: None)
  Receive Date: 20080711
  Receipt Date: 20080702
  Transmission Date: 20090109
  Serious: Yes (Other)
  Sender: FDA-Public Use
  Company Number: US-PFIZER INC-2008056593

PATIENT
  Age: 52 Year
  Sex: Male

DRUGS (14)
  1. NELFINAVIR MESILATE [Suspect]
     Indication: HIV INFECTION
     Dosage: DAILY DOSE:1250MG
  2. WARFARIN SODIUM [Interacting]
     Indication: PULMONARY EMBOLISM
     Dosage: DAILY DOSE:5MG
     Route: 048
  3. ABACAVIR [Concomitant]
     Dosage: DAILY DOSE:300MG
  4. TENOFOVIR [Concomitant]
     Dosage: DAILY DOSE:300MG
  5. PEGINTERFERON ALFA-2A [Concomitant]
  6. EPOGEN [Concomitant]
  7. RIBAVIRIN [Concomitant]
  8. GEMFIBROZIL [Concomitant]
  9. METOPROLOL [Concomitant]
  10. FOSINOPRIL SODIUM [Concomitant]
  11. MULTI-VITAMINS [Concomitant]
  12. FLUTICASONE PROPIONATE [Concomitant]
  13. INSULIN [Concomitant]
  14. ENOXAPARIN SODIUM [Concomitant]

REACTIONS (2)
  - DRUG EFFECT DECREASED [None]
  - DRUG INTERACTION [None]
